FAERS Safety Report 7721984-X (Version None)
Quarter: 2011Q3

REPORT INFORMATION
  Report Type: 
  Country: None (occurrence: None)
  Receive Date: 20110831
  Receipt Date: 20110822
  Transmission Date: 20111222
  Serious: Yes (Hospitalization, Other)
  Sender: FDA-Public Use
  Company Number: US-ASTRAZENECA-2011SE20137

PATIENT
  Age: 86 Year
  Sex: Female

DRUGS (5)
  1. PLAVIX [Concomitant]
  2. TOPROL-XL [Suspect]
     Route: 048
     Dates: start: 20040101, end: 20110301
  3. ISOSORBE [Concomitant]
  4. BENICAR [Concomitant]
  5. TOPROL-XL [Suspect]
     Indication: BLOOD PRESSURE
     Dosage: GENERIC
     Route: 048

REACTIONS (10)
  - DRUG INEFFECTIVE [None]
  - DYSKINESIA [None]
  - HEART RATE DECREASED [None]
  - CORONARY ARTERY DISEASE [None]
  - TRANSIENT ISCHAEMIC ATTACK [None]
  - BALANCE DISORDER [None]
  - BLOOD PRESSURE INADEQUATELY CONTROLLED [None]
  - ERUCTATION [None]
  - ABDOMINAL DISCOMFORT [None]
  - DIZZINESS [None]
